FAERS Safety Report 5875293-4 (Version None)
Quarter: 2008Q3

REPORT INFORMATION
  Report Type: 
  Country: None (occurrence: None)
  Receive Date: 20080909
  Receipt Date: 20080827
  Transmission Date: 20090109
  Serious: Yes (Life-Threatening, Disabling)
  Sender: FDA-Public Use
  Company Number: JP-MERCK-0806USA08808

PATIENT
  Age: 72 Year
  Sex: Male
  Weight: 76 kg

DRUGS (8)
  1. PRIMAXIN [Suspect]
     Indication: PYOTHORAX
     Route: 042
     Dates: start: 20080612, end: 20080625
  2. PRIMAXIN [Suspect]
     Indication: LUNG INFECTION
     Route: 042
     Dates: start: 20080612, end: 20080625
  3. CLINDAMYCIN PHOSPHATE [Concomitant]
     Indication: BACTERIAL INFECTION
     Route: 051
     Dates: start: 20080612
  4. NU-LOTAN [Suspect]
     Indication: HYPERTENSION
     Route: 048
     Dates: start: 20080609
  5. ASPIRIN [Concomitant]
     Indication: ANGINA PECTORIS
     Route: 048
     Dates: start: 20080609
  6. ADALAT [Concomitant]
     Indication: HYPERTENSION
     Route: 048
     Dates: start: 20080609
  7. CONIEL [Concomitant]
     Indication: HYPERTENSION
     Route: 048
     Dates: start: 20080609
  8. NORVASC [Concomitant]
     Indication: HYPERTENSION
     Route: 048
     Dates: start: 20080609

REACTIONS (3)
  - ALTERED STATE OF CONSCIOUSNESS [None]
  - MUSCLE RIGIDITY [None]
  - RHABDOMYOLYSIS [None]
